FAERS Safety Report 4309216-6 (Version None)
Quarter: 2004Q1

REPORT INFORMATION
  Report Type: 
  Country: None (occurrence: None)
  Receive Date: 20040301
  Receipt Date: 20040217
  Transmission Date: 20041129
  Serious: Yes (Other)
  Sender: FDA-Public Use
  Company Number: TR-JNJFOC-20040205278

PATIENT
  Age: 23 Year
  Sex: Female
  Weight: 65 kg

DRUGS (5)
  1. TOPAMAX [Suspect]
     Indication: BIRTH TRAUMA
     Dosage: 100 MG, 2 IN 1 DAY, ORAL
     Route: 048
  2. TOPAMAX [Suspect]
     Indication: PSYCHOMOTOR RETARDATION
     Dosage: 100 MG, 2 IN 1 DAY, ORAL
     Route: 048
  3. BARBECSACLONE (BARBEXACLONE) DRAGEES [Concomitant]
  4. VALPROATE (VALPROATE SODIUM) TABLETS [Concomitant]
  5. VIGABATRINE (VIGABATRIN) TABLETS [Concomitant]

REACTIONS (1)
  - STATUS EPILEPTICUS [None]
